FAERS Safety Report 6531302-0 (Version None)
Quarter: 2010Q1

REPORT INFORMATION
  Report Type: 
  Country: None (occurrence: None)
  Receive Date: 20100108
  Receipt Date: 20100106
  Transmission Date: 20100710
  Serious: Yes (Death, Other)
  Sender: FDA-Public Use
  Company Number: IN-SANOFI-AVENTIS-2010SA000763

PATIENT
  Age: 53 Year
  Sex: Male

DRUGS (1)
  1. TAXOTERE [Suspect]
     Route: 042

REACTIONS (2)
  - DEATH [None]
  - NEUTROPENIA [None]
